FAERS Safety Report 6709114-4 (Version None)
Quarter: 2010Q2

REPORT INFORMATION
  Report Type: 
  Country: None (occurrence: None)
  Receive Date: 20100503
  Receipt Date: 20100503
  Transmission Date: 20101027
  Serious: No
  Sender: FDA-Public Use
  Company Number: None

PATIENT
  Sex: Female

DRUGS (1)
  1. BONIVA [Suspect]
     Dosage: 3 MG/3ML IV
     Route: 042

REACTIONS (3)
  - ARTHRALGIA [None]
  - BONE PAIN [None]
  - CONNECTIVE TISSUE DISORDER [None]
